FAERS Safety Report 20801897 (Version 9)
Quarter: 2023Q4

REPORT INFORMATION
  Report Type: Report from Study
  Country: US (occurrence: US)
  Receive Date: 20220509
  Receipt Date: 20231114
  Transmission Date: 20240109
  Serious: Yes (Hospitalization, Other)
  Sender: FDA-Public Use
  Company Number: US-TAKEDA-2020TUS053182

PATIENT
  Sex: Female

DRUGS (1)
  1. HUMAN IMMUNOGLOBULIN G [Suspect]
     Active Substance: HUMAN IMMUNOGLOBULIN G
     Indication: Primary immunodeficiency syndrome
     Dosage: UNK
     Route: 042

REACTIONS (32)
  - Pneumothorax [Unknown]
  - Pneumonia [Unknown]
  - Hernia [Unknown]
  - Chronic obstructive pulmonary disease [Unknown]
  - Blood pressure decreased [Unknown]
  - Sepsis [Unknown]
  - Atrial fibrillation [Unknown]
  - Cardiac failure congestive [Unknown]
  - Hypoxia [Unknown]
  - Weight decreased [Unknown]
  - Stress [Unknown]
  - Weight increased [Unknown]
  - Food craving [Unknown]
  - Fall [Unknown]
  - Head injury [Unknown]
  - Sinus disorder [Unknown]
  - Joint injury [Unknown]
  - Arthropathy [Unknown]
  - Walking aid user [Unknown]
  - Device breakage [Unknown]
  - Cardiac disorder [Unknown]
  - Urinary tract infection [Unknown]
  - Upper respiratory tract infection [Unknown]
  - Pain [Unknown]
  - Swelling [Unknown]
  - Contusion [Unknown]
  - Back pain [Unknown]
  - Headache [Unknown]
  - Fatigue [Unknown]
  - Diarrhoea [Unknown]
  - Vertigo [Unknown]
  - Inappropriate schedule of product administration [Unknown]
